FAERS Safety Report 14261942 (Version 2)
Quarter: 2018Q1

REPORT INFORMATION
  Report Type: Spontaneous
  Country: CN (occurrence: CN)
  Receive Date: 20171208
  Receipt Date: 20180102
  Transmission Date: 20180508
  Serious: Yes (Hospitalization, Other)
  Sender: FDA-Public Use
  Company Number: CN-ASTRAZENECA-2017SF24655

PATIENT
  Age: 70 Year
  Sex: Female

DRUGS (1)
  1. IRESSA [Suspect]
     Active Substance: GEFITINIB
     Indication: NON-SMALL CELL LUNG CANCER
     Route: 048

REACTIONS (5)
  - Cognitive disorder [Recovering/Resolving]
  - Metastases to central nervous system [Unknown]
  - Amnesia [Recovering/Resolving]
  - Malignant neoplasm progression [Unknown]
  - Coma [Recovering/Resolving]
